FAERS Safety Report 7292482 (Version 7)
Quarter: 2012Q4

REPORT INFORMATION
  Report Type: Report from Study
  Country: US (occurrence: US)
  Receive Date: 20100224
  Receipt Date: 20121217
  Transmission Date: 20130627
  Serious: Yes (Hospitalization)
  Sender: FDA-Public Use
  Company Number: PHHO2010US02670

PATIENT
  Age: 48 Year
  Sex: Male
  Weight: 77.1 kg

DRUGS (9)
  1. AFINITOR [Suspect]
     Indication: GLIOBLASTOMA MULTIFORME
     Dosage: UNK
     Route: 048
     Dates: start: 20091231
  2. AVASTIN [Suspect]
     Indication: GLIOBLASTOMA MULTIFORME
     Dosage: UNK
     Route: 048
     Dates: start: 20091015, end: 20100211
  3. FAMOTIDINE [Concomitant]
  4. ACETAMINOPHEN [Concomitant]
  5. ATENOLOL [Concomitant]
  6. ACETAMINOPHEN W/HYDROCODONE [Concomitant]
  7. BACTRIM [Concomitant]
  8. ZOLPIDEM [Concomitant]
  9. MIDAZOLAM [Concomitant]

REACTIONS (8)
  - Pulmonary embolism [Recovered/Resolved]
  - Deep vein thrombosis [Unknown]
  - Dyspnoea [Recovered/Resolved]
  - Chest pain [Recovered/Resolved]
  - Anaemia [Recovering/Resolving]
  - Cheilitis [Recovered/Resolved]
  - Urinary tract infection [Recovered/Resolved]
  - Device related infection [Unknown]
